FAERS Safety Report 4425415-7 (Version None)
Quarter: 2004Q3

REPORT INFORMATION
  Report Type: 
  Country: None (occurrence: None)
  Receive Date: 20040813
  Receipt Date: 20040810
  Transmission Date: 20050211
  Serious: Yes (Hospitalization)
  Sender: FDA-Public Use
  Company Number: FR-GLAXOSMITHKLINE-B0341969A

PATIENT
  Age: 70 Year
  Sex: Male

DRUGS (5)
  1. AUGMENTIN '125' [Suspect]
     Dosage: 1G TWICE PER DAY
     Route: 048
     Dates: start: 20040508
  2. DI ANTALVIC [Suspect]
     Dosage: 2UNIT THREE TIMES PER DAY
     Route: 048
     Dates: start: 20040504, end: 20040508
  3. NEURONTIN [Suspect]
     Dosage: 1UNIT THREE TIMES PER DAY
     Route: 048
  4. NISIS [Suspect]
     Dosage: 1UNIT PER DAY
     Route: 048
  5. BISOPROLOL FUMARATE [Concomitant]
     Route: 048

REACTIONS (3)
  - BLOOD ALKALINE PHOSPHATASE INCREASED [None]
  - CYTOLYTIC HEPATITIS [None]
  - GAMMA-GLUTAMYLTRANSFERASE INCREASED [None]
